FAERS Safety Report 17901307 (Version 2)
Quarter: 2020Q2

REPORT INFORMATION
  Report Type: Spontaneous
  Country: US (occurrence: US)
  Receive Date: 20200616
  Receipt Date: 20200616
  Transmission Date: 20200714
  Serious: Yes (Hospitalization, Other)
  Sender: FDA-Public Use
  Company Number: US-GILEAD-2020-0472570

PATIENT
  Sex: Male

DRUGS (2)
  1. RIFABUTIN. [Concomitant]
     Active Substance: RIFABUTIN
  2. TRUVADA [Suspect]
     Active Substance: EMTRICITABINE\TENOFOVIR DISOPROXIL FUMARATE
     Indication: HIV INFECTION
     Route: 065

REACTIONS (4)
  - HIV infection [Unknown]
  - Product use issue [Recovered/Resolved]
  - Mycobacterium avium complex infection [Unknown]
  - Malaise [Not Recovered/Not Resolved]

NARRATIVE: CASE EVENT DATE: 20200601
